FAERS Safety Report 7055781-8 (Version None)
Quarter: 2010Q4

REPORT INFORMATION
  Report Type: 
  Country: None (occurrence: None)
  Receive Date: 20101021
  Receipt Date: 20101012
  Transmission Date: 20110411
  Serious: Yes (Other)
  Sender: FDA-Public Use
  Company Number: AT-ROCHE-732712

PATIENT
  Sex: Male

DRUGS (1)
  1. AVASTIN [Suspect]
     Route: 042
     Dates: start: 20100722, end: 20100917

REACTIONS (2)
  - MALIGNANT NEOPLASM PROGRESSION [None]
  - MYALGIA [None]
